FAERS Safety Report 6458946-9 (Version None)
Quarter: 2009Q4

REPORT INFORMATION
  Report Type: 
  Country: None (occurrence: None)
  Receive Date: 20091125
  Receipt Date: 20091125
  Transmission Date: 20100525
  Serious: Yes (Other)
  Sender: FDA-Public Use
  Company Number: None

PATIENT
  Age: 36 Year
  Sex: Male
  Weight: 85.2762 kg

DRUGS (1)
  1. FELBATOL [Suspect]
     Indication: EPILEPSY
     Dosage: 100 MG 2 AM, 2 NOON, 2 PM
     Dates: start: 20080501

REACTIONS (4)
  - ABNORMAL BEHAVIOUR [None]
  - AGGRESSION [None]
  - ANGER [None]
  - PERSONALITY CHANGE [None]
